FAERS Safety Report 6539710-9 (Version None)
Quarter: 2010Q1

REPORT INFORMATION
  Report Type: 
  Country: None (occurrence: None)
  Receive Date: 20100115
  Receipt Date: 20100108
  Transmission Date: 20100710
  Serious: Yes (Hospitalization, Other)
  Sender: FDA-Public Use
  Company Number: CA-JNJFOC-20091205791

PATIENT
  Sex: Male
  Weight: 96 kg

DRUGS (21)
  1. REMICADE [Suspect]
     Route: 042
  2. REMICADE [Suspect]
     Indication: ANKYLOSING SPONDYLITIS
     Route: 042
  3. FLURAZEPAM [Concomitant]
     Indication: SLEEP DISORDER THERAPY
     Route: 048
  4. AMITRIPTYLINE [Concomitant]
     Indication: SLEEP DISORDER THERAPY
     Route: 048
  5. NATURAL TEARS [Concomitant]
     Indication: DRY EYE
     Route: 047
  6. NITROGLYCERIN [Concomitant]
     Indication: ANGINA PECTORIS
     Route: 060
  7. DOCUSATE SODIUM [Concomitant]
     Route: 048
  8. NORVASC [Concomitant]
     Indication: TEMPORAL ARTERITIS
     Route: 048
  9. GRAVOL TAB [Concomitant]
     Indication: NAUSEA
     Route: 048
  10. DELATESTRYL [Concomitant]
     Route: 030
  11. LIPITOR [Concomitant]
     Indication: BLOOD CHOLESTEROL INCREASED
     Route: 048
  12. CLARITIN [Concomitant]
     Indication: SEASONAL ALLERGY
     Route: 048
  13. PRED FORTE [Concomitant]
     Indication: DRY EYE
     Route: 047
  14. ACETAMINOPHEN [Concomitant]
     Indication: ANKYLOSING SPONDYLITIS
     Route: 048
  15. DILAUDID [Concomitant]
     Indication: ANKYLOSING SPONDYLITIS
     Route: 048
  16. ZANTAC [Concomitant]
     Indication: ABDOMINAL PAIN
     Route: 048
  17. ADVAIR DISKUS 100/50 [Concomitant]
     Indication: ASTHMA
     Route: 055
  18. MORPHINE SULFATE [Concomitant]
     Indication: ANKYLOSING SPONDYLITIS
     Route: 048
  19. BISOPROLOL FUMARATE [Concomitant]
     Indication: HYPERTENSION
     Route: 048
  20. PLAVIX [Concomitant]
     Indication: PROPHYLAXIS
     Route: 048
  21. HYDROCHLOROTHIAZIDE [Concomitant]
     Indication: HYPERTENSION
     Route: 048

REACTIONS (2)
  - CYST [None]
  - PERIPHERAL VASCULAR DISORDER [None]
